FAERS Safety Report 8849745 (Version 2)
Quarter: 2015Q3

REPORT INFORMATION
  Report Type: Report from Study
  Country: US (occurrence: US)
  Receive Date: 20121019
  Receipt Date: 20150814
  Transmission Date: 20151125
  Serious: Yes (Other)
  Sender: FDA-Public Use
  Company Number: US-ROCHE-1131765

PATIENT
  Age: 18 Year
  Sex: Female
  Weight: 45.36 kg

DRUGS (6)
  1. PROTROPIN [Suspect]
     Active Substance: SOMATREM
     Route: 042
  2. PROTROPIN [Suspect]
     Active Substance: SOMATREM
     Route: 058
  3. NUTROPIN [Suspect]
     Active Substance: SOMATROPIN
     Indication: GROWTH HORMONE DEFICIENCY
  4. NUTROPIN [Suspect]
     Active Substance: SOMATROPIN
     Indication: HYPOPITUITARISM
     Route: 058
     Dates: start: 199611
  5. SYNTHROID [Concomitant]
     Active Substance: LEVOTHYROXINE SODIUM
     Route: 065
     Dates: start: 19980317
  6. PROTROPIN [Suspect]
     Active Substance: SOMATREM
     Indication: GROWTH HORMONE DEFICIENCY
     Route: 058
     Dates: start: 19961127

REACTIONS (15)
  - Oropharyngeal pain [Unknown]
  - Polydipsia [Unknown]
  - Thirst [Unknown]
  - No therapeutic response [Unknown]
  - Malaise [Unknown]
  - Fatigue [Unknown]
  - Dysphonia [Unknown]
  - Polyuria [Unknown]
  - Disturbance in attention [Unknown]
  - Pituitary tumour benign [Unknown]
  - Asthenia [Unknown]
  - Drug intolerance [Unknown]
  - Osteonecrosis [Unknown]
  - Arthralgia [Unknown]
  - Fatigue [Unknown]

NARRATIVE: CASE EVENT DATE: 200003
